FAERS Safety Report 6927493-X (Version None)
Quarter: 2010Q3

REPORT INFORMATION
  Report Type: 
  Country: None (occurrence: None)
  Receive Date: 20100817
  Receipt Date: 20100506
  Transmission Date: 20110219
  Serious: Yes (Hospitalization, Other)
  Sender: FDA-Public Use
  Company Number: US-BAYER-201035839GPV

PATIENT
  Age: 75 Year
  Sex: Male

DRUGS (2)
  1. ASPIRIN [Suspect]
     Indication: PLATELET AGGREGATION INHIBITION
     Dates: start: 20030101
  2. CLOPIDOGREL [Suspect]
     Indication: PLATELET AGGREGATION INHIBITION
     Dates: start: 20030101

REACTIONS (1)
  - THROMBOSIS IN DEVICE [None]
